FAERS Safety Report 10218813 (Version 1)
Quarter: 2014Q2

REPORT INFORMATION
  Report Type: Spontaneous
  Country: US (occurrence: None)
  Receive Date: 20140604
  Receipt Date: 20140604
  Transmission Date: 20141212
  Serious: Yes (Disabling)
  Sender: FDA-Public Use
  Company Number: None

PATIENT
  Age: 45 Year
  Sex: Female
  Weight: 72.58 kg

DRUGS (1)
  1. BUPROPION XL 300MG PAR [Suspect]
     Indication: DEPRESSION
     Dosage: 1 TABLET ONCE DAILY TAKEN BY MOUTH
     Route: 048
     Dates: start: 20140201, end: 20140302

REACTIONS (2)
  - Disease recurrence [None]
  - Product substitution issue [None]
